FAERS Safety Report 10089800 (Version 1)
Quarter: 2014Q2

REPORT INFORMATION
  Report Type: Spontaneous
  Country: FR (occurrence: None)
  Receive Date: 20140417
  Receipt Date: 20140417
  Transmission Date: 20141212
  Serious: Yes (Hospitalization, Other)
  Sender: FDA-Public Use
  Company Number: ADR-2014-00615

PATIENT
  Age: 54 Year
  Sex: Female

DRUGS (2)
  1. BACLOFEN [Suspect]
     Indication: QUADRIPLEGIA
     Route: 037
  2. BACLOFEN [Suspect]
     Indication: MUSCLE SPASTICITY
     Route: 037

REACTIONS (1)
  - Uterine cancer [None]
